FAERS Safety Report 5792077-6 (Version None)
Quarter: 2008Q2

REPORT INFORMATION
  Report Type: 
  Country: None (occurrence: None)
  Receive Date: 20080623
  Receipt Date: 20080228
  Transmission Date: 20081010
  Serious: Yes (Hospitalization, Other)
  Sender: FDA-Public Use
  Company Number: PAR_02236_2008

PATIENT
  Age: 7 Year
  Sex: Male

DRUGS (2)
  1. IBUPROFEN [Suspect]
     Indication: JUVENILE ARTHRITIS
     Dosage: 8-10 MG/KG 3 TIMES PER DAY
  2. ASPIRIN [Suspect]
     Indication: CORONARY ARTERY ANEURYSM
     Dosage: 5 MG/KG

REACTIONS (6)
  - CORONARY ARTERY ANEURYSM [None]
  - CORONARY ARTERY STENOSIS [None]
  - INHIBITORY DRUG INTERACTION [None]
  - KAWASAKI'S DISEASE [None]
  - SINGLE PHOTON EMISSION COMPUTERISED TOMOGRAM ABNORMAL [None]
  - THROMBOSIS [None]
